FAERS Safety Report 9342406 (Version 1)
Quarter: 2013Q2

REPORT INFORMATION
  Report Type: Spontaneous
  Country: TR (occurrence: None)
  Receive Date: 20130607
  Receipt Date: 20130607
  Transmission Date: 20140414
  Serious: Yes (Other)
  Sender: FDA-Public Use
  Company Number: 2013TR0208

PATIENT
  Age: 33 None
  Sex: Female

DRUGS (2)
  1. ANAKINRA [Suspect]
     Indication: MYALGIA
  2. ANAKINRA [Suspect]
     Indication: FAMILIAL MEDITERRANEAN FEVER

REACTIONS (4)
  - Vaginal haemorrhage [None]
  - Pregnancy [None]
  - Caesarean section [None]
  - Exposure during pregnancy [None]
